FAERS Safety Report 11517665 (Version 1)
Quarter: 2015Q3

REPORT INFORMATION
  Report Type: Spontaneous
  Country: FR (occurrence: FR)
  Receive Date: 20150917
  Receipt Date: 20150917
  Transmission Date: 20151125
  Serious: Yes (Hospitalization)
  Sender: FDA-Public Use
  Company Number: FR-PFIZER INC-2015302813

PATIENT
  Age: 77 Year
  Sex: Male

DRUGS (7)
  1. VANCOMYCINE SANDOZ [Suspect]
     Active Substance: VANCOMYCIN
     Indication: ANTIBIOTIC THERAPY
     Dosage: 1 G, 2X/DAY
     Route: 041
     Dates: start: 20150727, end: 20150820
  2. AMLOR [Suspect]
     Active Substance: AMLODIPINE BESYLATE
     Dosage: 1 DF, 1X/DAY
     Route: 048
     Dates: start: 20150727, end: 20150820
  3. PARACETAMOL [Concomitant]
     Active Substance: ACETAMINOPHEN
  4. TOPALGIC [Concomitant]
     Active Substance: TRAMADOL
  5. CETIRIZINE /00884302/ [Concomitant]
     Active Substance: CETIRIZINE HYDROCHLORIDE
  6. NEURONTIN [Concomitant]
     Active Substance: GABAPENTIN
  7. MEROPENEM MYLAN [Suspect]
     Active Substance: MEROPENEM
     Indication: ANTIBIOTIC THERAPY
     Dosage: 1 G, 3X/DAY
     Route: 041
     Dates: start: 20150727, end: 20150820

REACTIONS (1)
  - Drug reaction with eosinophilia and systemic symptoms [Recovered/Resolved]

NARRATIVE: CASE EVENT DATE: 20150820
